FAERS Safety Report 15883024 (Version 1)
Quarter: 2019Q1

REPORT INFORMATION
  Report Type: Spontaneous
  Country: US (occurrence: US)
  Receive Date: 20190107
  Receipt Date: 20190107
  Transmission Date: 20190417
  Serious: No
  Sender: FDA-Public Use
  Company Number: None

PATIENT
  Age: 37 Year
  Sex: Male

DRUGS (1)
  1. IMATINIB MES TAB 100MG [Suspect]
     Active Substance: IMATINIB MESYLATE
     Route: 048
     Dates: start: 201706

REACTIONS (4)
  - Therapy cessation [None]
  - Osteomyelitis [None]
  - Foot amputation [None]
  - Memory impairment [None]

NARRATIVE: CASE EVENT DATE: 20190105
